FAERS Safety Report 12174568 (Version 2)
Quarter: 2016Q1

REPORT INFORMATION
  Report Type: Report from Study
  Country: FR (occurrence: FR)
  Receive Date: 20160312
  Receipt Date: 20160314
  Transmission Date: 20160526
  Serious: Yes (Hospitalization, Other)
  Sender: FDA-Public Use
  Company Number: FR-AMGEN-FRACT2016028254

PATIENT
  Sex: Female

DRUGS (2)
  1. AMG 145 [Suspect]
     Active Substance: EVOLOCUMAB
     Indication: EXPOSURE VIA FATHER
     Dosage: 140 MG, Q2WK
     Route: 050
  2. PREFILLED AUTOINJECTOR/PEN [Suspect]
     Active Substance: DEVICE
     Indication: EXPOSURE VIA FATHER
     Dosage: UNK
     Route: 050

REACTIONS (3)
  - Premature delivery [Recovered/Resolved]
  - Caesarean section [Recovered/Resolved]
  - Exposure via father [Recovered/Resolved]
